FAERS Safety Report 24538947 (Version 2)
Quarter: 2024Q4

REPORT INFORMATION
  Report Type: Spontaneous
  Country: US (occurrence: US)
  Receive Date: 20241023
  Receipt Date: 20241112
  Transmission Date: 20250114
  Serious: No
  Sender: EPIC PHARM
  Company Number: US-EPICPHARMA-US-2024EPCSPO01288

PATIENT
  Age: 33 Year
  Sex: Female
  Weight: 120 kg

DRUGS (2)
  1. BUPROPION HYDROCHLORIDE [Suspect]
     Active Substance: BUPROPION HYDROCHLORIDE
     Indication: Product used for unknown indication
     Route: 048
     Dates: start: 20240902
  2. BUPROPION HYDROCHLORIDE [Suspect]
     Active Substance: BUPROPION HYDROCHLORIDE

REACTIONS (17)
  - Headache [Unknown]
  - Vomiting [Unknown]
  - Fatigue [Unknown]
  - Increased appetite [Unknown]
  - Brain fog [Unknown]
  - Apathy [Unknown]
  - Product odour abnormal [Unknown]
  - Product physical issue [Unknown]
  - Product substitution issue [Unknown]
  - Therapeutic response decreased [Unknown]
  - Nausea [Unknown]
  - Myalgia [Unknown]
  - Asthenia [Unknown]
  - Weight increased [Unknown]
  - Amnesia [Unknown]
  - Disturbance in attention [Unknown]
  - Anxiety [Unknown]

NARRATIVE: CASE EVENT DATE: 20240902
